FAERS Safety Report 7552576-3 (Version None)
Quarter: 2011Q2

REPORT INFORMATION
  Report Type: 
  Country: None (occurrence: None)
  Receive Date: 20110616
  Receipt Date: 20110516
  Transmission Date: 20111010
  Serious: No
  Sender: FDA-Public Use
  Company Number: US-MYLANLABS-2011S1008489

PATIENT
  Age: 79 Year
  Sex: Female
  Weight: 58.06 kg

DRUGS (3)
  1. VENLAFAXINE HYDROCHLORIDE [Suspect]
     Indication: ANXIETY
     Route: 048
     Dates: start: 20110101, end: 20110421
  2. OMEPRAZOLE [Concomitant]
     Route: 048
  3. CLONAZEPAM [Concomitant]
     Route: 048

REACTIONS (2)
  - INSOMNIA [None]
  - DRUG INEFFECTIVE [None]
